FAERS Safety Report 8968149 (Version 1)
Quarter: 2012Q4

REPORT INFORMATION
  Report Type: Spontaneous
  Country: US (occurrence: None)
  Receive Date: 20121207
  Receipt Date: 20121207
  Transmission Date: 20130627
  Serious: Yes (Death, Life-Threatening)
  Sender: FDA-Public Use
  Company Number: 2012-08659

PATIENT
  Age: 6 Year
  Sex: Male

DRUGS (3)
  1. OXALIPLATIN [Suspect]
     Indication: HEPATOBLASTOMA
     Dosage: 2/week
  2. GEMCITABINE (GEMCITABINE) [Suspect]
     Indication: HEPATOBLASTOMA
     Dosage: 2/week
  3. BEVACIZUMAB [Suspect]
     Indication: HEPATOBLASTOMA
     Dosage: every 2 weeks

REACTIONS (8)
  - Posterior reversible encephalopathy syndrome [None]
  - Hypertension [None]
  - Proteinuria [None]
  - Haematuria [None]
  - Grand mal convulsion [None]
  - Hyponatraemia [None]
  - Hepatoblastoma [None]
  - Malignant neoplasm progression [None]
